FAERS Safety Report 9500671 (Version 1)
Quarter: 2013Q1

REPORT INFORMATION
  Report Type: Spontaneous
  Country: US (occurrence: None)
  Receive Date: 20130118
  Receipt Date: 20130118
  Transmission Date: 20140127
  Serious: Yes (Hospitalization)
  Sender: FDA-Public Use
  Company Number: A-NJ2012-60417

PATIENT
  Age: 53 Year
  Sex: Female

DRUGS (3)
  1. TRACLEER  (BOSENTAN) [Suspect]
     Indication: PULMONARY ARTERIAL HYPERTENSION
     Route: 048
     Dates: start: 20071022
  2. REVATIO (SILDENAFIL CITRATE) (UNKNOWN) (SILDENAFIL) [Concomitant]
  3. COUMADIN (CARFARIN SODIUM) [Concomitant]

REACTIONS (4)
  - Dyspnoea [None]
  - Infection [None]
  - Headache [None]
  - Dizziness [None]
